FAERS Safety Report 8733610 (Version 2)
Quarter: 2012Q4

REPORT INFORMATION
  Report Type: Report from Study
  Country: DE (occurrence: DE)
  Receive Date: 20120821
  Receipt Date: 20121109
  Transmission Date: 20130627
  Serious: Yes (Hospitalization)
  Sender: FDA-Public Use
  Company Number: DE-PFIZER INC-2012199669

PATIENT
  Age: 80 Year
  Sex: Female
  Weight: 71 kg

DRUGS (9)
  1. GENOTROPIN [Suspect]
     Indication: GROWTH HORMONE DEFICIENCY
     Dosage: 0.4 mg, 7/wk
     Route: 058
     Dates: start: 20040503
  2. ANDANTE [Concomitant]
     Indication: HYPERTENSION
     Dosage: UNK
     Dates: start: 19981115
  3. SIMVASTATIN [Concomitant]
     Indication: HYPERCHOLESTEREMIA
     Dosage: UNK
     Dates: start: 20040115
  4. OSSOFORTIN FORTE [Concomitant]
     Dosage: UNK
     Dates: start: 19991222
  5. BELOC-ZOC MITE [Concomitant]
     Indication: HYPERTENSION
     Dosage: UNK
     Dates: start: 20000215
  6. LEVOTHYROXINE [Concomitant]
     Indication: BLOOD THYROID STIMULATING HORMONE DECREASED
     Dosage: UNK
     Dates: start: 19981115
  7. ALENDRONATE SODIUM [Concomitant]
     Indication: OSTEOPOROSIS
     Dosage: UNK
     Dates: start: 20060101
  8. FORTZAAR [Concomitant]
     Indication: HEART DISEASE, UNSPECIFIED
     Dosage: UNK
     Dates: start: 20060101
  9. OSPUR D3 [Concomitant]
     Indication: OSTEOPOROSIS
     Dosage: UNK
     Dates: start: 20001110

REACTIONS (1)
  - Arthropathy [Unknown]
